FAERS Safety Report 23746156 (Version 2)
Quarter: 2024Q2

REPORT INFORMATION
  Report Type: Spontaneous
  Country: JP (occurrence: JP)
  Receive Date: 20240416
  Receipt Date: 20240418
  Transmission Date: 20240716
  Serious: Yes (Hospitalization, Other)
  Sender: FDA-Public Use
  Company Number: JP-MSD-M2024-13710

PATIENT
  Age: 74 Year
  Sex: Male

DRUGS (2)
  1. KEYTRUDA [Suspect]
     Active Substance: PEMBROLIZUMAB
     Indication: Renal cell carcinoma recurrent
     Dosage: 200 MILLIGRAM, Q3W
     Route: 041
     Dates: start: 20240306, end: 20240306
  2. LENVATINIB MESYLATE [Suspect]
     Active Substance: LENVATINIB MESYLATE
     Indication: Renal cell carcinoma recurrent
     Dosage: 20 MILLIGRAM, QD
     Route: 048
     Dates: start: 20240306, end: 2024

REACTIONS (4)
  - Large intestine perforation [Recovered/Resolved]
  - Peritonitis [Unknown]
  - Pyrexia [Recovered/Resolved]
  - Decreased appetite [Recovered/Resolved]

NARRATIVE: CASE EVENT DATE: 20240101
